FAERS Safety Report 6131207-3 (Version None)
Quarter: 2009Q1

REPORT INFORMATION
  Report Type: 
  Country: None (occurrence: None)
  Receive Date: 20090325
  Receipt Date: 20090317
  Transmission Date: 20090719
  Serious: Yes (Other)
  Sender: FDA-Public Use
  Company Number: US-ELI_LILLY_AND_COMPANY-US200903004165

PATIENT
  Sex: Male

DRUGS (3)
  1. HUMALOG MIX 75/25 [Suspect]
  2. HUMALOG [Suspect]
  3. LANTUS [Concomitant]
     Dosage: 45 U, EACH EVENING

REACTIONS (11)
  - BLINDNESS [None]
  - BLINDNESS UNILATERAL [None]
  - BLOOD GLUCOSE DECREASED [None]
  - BLOOD GLUCOSE INCREASED [None]
  - DIABETES MELLITUS INADEQUATE CONTROL [None]
  - DRUG INEFFECTIVE [None]
  - EYE HAEMORRHAGE [None]
  - GLYCOSYLATED HAEMOGLOBIN INCREASED [None]
  - MEDICATION ERROR [None]
  - PUPILLARY DISORDER [None]
  - VISUAL ACUITY REDUCED [None]
